FAERS Safety Report 19083645 (Version 3)
Quarter: 2021Q4

REPORT INFORMATION
  Report Type: Spontaneous
  Country: JP (occurrence: JP)
  Receive Date: 20210401
  Receipt Date: 20211008
  Transmission Date: 20220303
  Serious: Yes (Death, Other)
  Sender: FDA-Public Use
  Company Number: JP-AMGEN-JPNSP2021042661

PATIENT

DRUGS (3)
  1. BLINCYTO [Suspect]
     Active Substance: BLINATUMOMAB
     Indication: B precursor type acute leukaemia
     Dosage: UNK
     Route: 041
  2. METHOTREXATE [Suspect]
     Active Substance: METHOTREXATE
     Indication: Product used for unknown indication
     Dosage: UNK
     Route: 037
  3. INOTUZUMAB OZOGAMICIN [Concomitant]
     Active Substance: INOTUZUMAB OZOGAMICIN
     Indication: Product used for unknown indication
     Route: 065

REACTIONS (11)
  - Death [Fatal]
  - Blast cell count increased [Unknown]
  - Hepatotoxicity [Unknown]
  - Neurotoxicity [Unknown]
  - Thrombocytopenia [Unknown]
  - Neutropenia [Unknown]
  - Anaemia [Unknown]
  - Cytokine release syndrome [Unknown]
  - Hepatic function abnormal [Unknown]
  - Full blood count abnormal [Unknown]
  - Pyrexia [Unknown]
